FAERS Safety Report 9015370 (Version 1)
Quarter: 2013Q1

REPORT INFORMATION
  Report Type: Spontaneous
  Country: US (occurrence: None)
  Receive Date: 20130109
  Receipt Date: 20130109
  Transmission Date: 20140127
  Serious: Yes (Hospitalization)
  Sender: FDA-Public Use
  Company Number: None

PATIENT
  Age: 84 Year
  Sex: Female

DRUGS (1)
  1. CIPROFLOXACIN HCL [Suspect]
     Indication: CYSTITIS
     Dosage: 500 MG TWICE A DAY
     Dates: start: 20120906, end: 20120916

REACTIONS (4)
  - Rash erythematous [None]
  - Transient ischaemic attack [None]
  - Joint swelling [None]
  - Tendon disorder [None]
